FAERS Safety Report 24386479 (Version 1)
Quarter: 2024Q4

REPORT INFORMATION
  Report Type: Spontaneous
  Country: CN (occurrence: CN)
  Receive Date: 20241002
  Receipt Date: 20241002
  Transmission Date: 20250115
  Serious: Yes (Other)
  Sender: ROCHE
  Company Number: CN-ROCHE-10000094185

PATIENT
  Age: 56 Year
  Sex: Female

DRUGS (2)
  1. BEVACIZUMAB [Suspect]
     Active Substance: BEVACIZUMAB
     Indication: Tumour ulceration
     Dosage: ACCORDING TO THE EVENT DESCRIPTION, THE DOSE OF AVASTIN SHOULD BE 400MG
     Route: 042
     Dates: start: 20240701, end: 20240701
  2. OXALIPLATIN [Suspect]
     Active Substance: OXALIPLATIN
     Indication: Tumour ulceration
     Route: 042
     Dates: start: 20240701, end: 20240701

REACTIONS (1)
  - Myelosuppression [Recovering/Resolving]

NARRATIVE: CASE EVENT DATE: 20240723
